FAERS Safety Report 22317794 (Version 1)
Quarter: 2023Q2

REPORT INFORMATION
  Report Type: Spontaneous
  Country: US (occurrence: US)
  Receive Date: 20230515
  Receipt Date: 20230515
  Transmission Date: 20230721
  Serious: No
  Sender: FDA-Public Use
  Company Number: US-NOVEN PHARMACEUTICALS, INC.-2022-NOV-US000885

PATIENT

DRUGS (1)
  1. DAYTRANA [Suspect]
     Active Substance: METHYLPHENIDATE
     Indication: Attention deficit hyperactivity disorder
     Dosage: UNKNOWN, UNK
     Route: 062

REACTIONS (3)
  - Intentional medical device removal by patient [Unknown]
  - Product adhesion issue [Unknown]
  - No adverse event [Unknown]
